FAERS Safety Report 19623528 (Version 1)
Quarter: 2021Q3

REPORT INFORMATION
  Report Type: Report from Study
  Country: None (occurrence: CA)
  Receive Date: 20210729
  Receipt Date: 20210729
  Transmission Date: 20211014
  Serious: Yes (Other)
  Sender: FDA-Public Use
  Company Number: CA-ABBVIE-21K-028-4010083-00

PATIENT
  Sex: Male

DRUGS (1)
  1. HUMIRA [Suspect]
     Active Substance: ADALIMUMAB
     Indication: HIDRADENITIS
     Route: 058
     Dates: start: 20201124

REACTIONS (7)
  - Scratch [Not Recovered/Not Resolved]
  - Malaise [Not Recovered/Not Resolved]
  - Skin discomfort [Not Recovered/Not Resolved]
  - Cyst [Recovered/Resolved]
  - Skin disorder [Not Recovered/Not Resolved]
  - Cyst [Not Recovered/Not Resolved]
  - Fatigue [Not Recovered/Not Resolved]

NARRATIVE: CASE EVENT DATE: 2021
